FAERS Safety Report 24138907 (Version 1)
Quarter: 2024Q3

REPORT INFORMATION
  Report Type: Report from Study
  Country: ZA (occurrence: ZA)
  Receive Date: 20240726
  Receipt Date: 20240726
  Transmission Date: 20241016
  Serious: Yes (Hospitalization)
  Sender: ABBVIE
  Company Number: ZA-ABBOTT-2024A-1384769

PATIENT
  Age: 65 Year
  Sex: Male

DRUGS (7)
  1. FENOFIBRATE [Suspect]
     Active Substance: FENOFIBRATE
     Indication: Blood cholesterol abnormal
     Dosage: 200 MG DAILY
     Route: 048
  2. CARVEDILOL [Concomitant]
     Active Substance: CARVEDILOL
     Indication: Hypertension
     Dosage: 6.25 MG AT NIGHT
     Route: 048
  3. Spiractin [Concomitant]
     Indication: Hypertension
     Dosage: 25 MG DAILY
     Route: 048
  4. Spiractin [Concomitant]
     Indication: Hypertension
     Dosage: 100 MG DAILY
     Route: 048
  5. ROSUVASTATIN [Concomitant]
     Active Substance: ROSUVASTATIN
     Indication: Blood cholesterol abnormal
     Dosage: 20 MG AT NIGHT
     Route: 048
  6. ALLOPURINOL [Concomitant]
     Active Substance: ALLOPURINOL
     Indication: Gout
     Dosage: 300 MG AT NIGHT
     Route: 048
  7. LASIX [Concomitant]
     Active Substance: FUROSEMIDE
     Indication: Hypertension
     Dosage: 40 MG DAILY
     Route: 048

REACTIONS (1)
  - Haemorrhage [Unknown]
